FAERS Safety Report 6294448-0 (Version None)
Quarter: 2009Q3

REPORT INFORMATION
  Report Type: 
  Country: None (occurrence: None)
  Receive Date: 20090730
  Receipt Date: 20090715
  Transmission Date: 20100115
  Serious: Yes (Other)
  Sender: FDA-Public Use
  Company Number: ADE2009-0747

PATIENT
  Age: 86 Year
  Sex: Female

DRUGS (2)
  1. ALENDRONATE SODIUM [Suspect]
  2. RISEDRONIC ACID [Suspect]

REACTIONS (3)
  - ANTERIOR CHAMBER CELL [None]
  - CATARACT [None]
  - UVEITIS [None]
